FAERS Safety Report 16894044 (Version 1)
Quarter: 2019Q4

REPORT INFORMATION
  Report Type: Spontaneous
  Country: US (occurrence: US)
  Receive Date: 20190813
  Receipt Date: 20190813
  Transmission Date: 20200122
  Serious: No
  Sender: FDA-Public Use
  Company Number: None

PATIENT
  Age: 32 Year
  Sex: Female

DRUGS (4)
  1. MERCAPTOPUR [Concomitant]
  2. HUMIRA [Suspect]
     Active Substance: ADALIMUMAB
     Indication: CROHN^S DISEASE
     Route: 058
     Dates: start: 20180113
  3. MESALAMINE. [Concomitant]
     Active Substance: MESALAMINE
  4. LIALDA [Concomitant]
     Active Substance: MESALAMINE

REACTIONS (3)
  - Pregnancy [None]
  - Therapy cessation [None]
  - Exposure during pregnancy [None]

NARRATIVE: CASE EVENT DATE: 2019
